FAERS Safety Report 8578515-4 (Version None)
Quarter: 2012Q3

REPORT INFORMATION
  Report Type: 
  Country: None (occurrence: None)
  Receive Date: 20120808
  Receipt Date: 20120730
  Transmission Date: 20120928
  Serious: Yes (Other)
  Sender: FDA-Public Use
  Company Number: US-ASTRAZENECA-2012SE54063

PATIENT
  Age: 933 Month
  Sex: Female
  Weight: 78 kg

DRUGS (8)
  1. ANASTROZOLE [Concomitant]
     Indication: BREAST CANCER
  2. CARDILOL [Concomitant]
  3. SYMBICORT [Suspect]
     Dosage: 160/4.5, 2 PUFFS IN THE MORNING AND 1 PUFF IN THE EVENING
     Route: 055
     Dates: start: 20120501
  4. NASONEX [Concomitant]
     Dosage: AS NEEDED
     Route: 045
  5. HYDROCHLOROTHIAZIDE [Concomitant]
  6. SYMBICORT [Suspect]
     Indication: CHRONIC OBSTRUCTIVE PULMONARY DISEASE
     Dosage: 160/4.5, 2 PUFFS TWO TIMES A DAY
     Route: 055
     Dates: start: 20100101, end: 20120501
  7. SPIRIVA [Concomitant]
     Dosage: DAILY
  8. AZELASTINE HCL [Concomitant]

REACTIONS (5)
  - ROTATOR CUFF SYNDROME [None]
  - EXOSTOSIS [None]
  - MUSCLE INJURY [None]
  - THERAPEUTIC RESPONSE UNEXPECTED [None]
  - BREAST CANCER [None]
